FAERS Safety Report 8450929-2 (Version None)
Quarter: 2012Q2

REPORT INFORMATION
  Report Type: 
  Country: None (occurrence: None)
  Receive Date: 20120615
  Receipt Date: 20120615
  Transmission Date: 20120825
  Serious: Yes (Disabling, Other)
  Sender: FDA-Public Use
  Company Number: None

PATIENT
  Sex: Male
  Weight: 136.4 kg

DRUGS (1)
  1. PROPECIA [Suspect]
     Indication: ALOPECIA
     Dosage: 1 MG DAILY
     Dates: start: 20020101, end: 20100101

REACTIONS (6)
  - DEPRESSION [None]
  - WEIGHT INCREASED [None]
  - MALAISE [None]
  - MALE GENITAL ATROPHY [None]
  - LOSS OF LIBIDO [None]
  - SEXUAL DYSFUNCTION [None]
